FAERS Safety Report 7542351-8 (Version None)
Quarter: 2011Q2

REPORT INFORMATION
  Report Type: 
  Country: None (occurrence: None)
  Receive Date: 20110606
  Receipt Date: 20110520
  Transmission Date: 20111010
  Serious: Yes (Hospitalization)
  Sender: FDA-Public Use
  Company Number: NAP-11-05

PATIENT
  Age: 65 Year
  Sex: Male

DRUGS (6)
  1. NAPROXEN [Suspect]
     Indication: PANCREATIC CARCINOMA
  2. LEVOFLOXACIN [Concomitant]
  3. GLIMEPIRIDE [Concomitant]
  4. TOLTERODINE TARTRATE [Concomitant]
  5. ACARBOSE [Concomitant]
  6. TAMSULOSIN HCL [Concomitant]

REACTIONS (10)
  - RASH MACULO-PAPULAR [None]
  - DRUG ERUPTION [None]
  - PSEUDOLYMPHOMA [None]
  - PYREXIA [None]
  - ABDOMINAL PAIN UPPER [None]
  - PANCREATIC CARCINOMA [None]
  - RASH PRURITIC [None]
  - VOMITING [None]
  - NAUSEA [None]
  - PRURITUS [None]
